FAERS Safety Report 7210425-7 (Version None)
Quarter: 2011Q1

REPORT INFORMATION
  Report Type: 
  Country: None (occurrence: None)
  Receive Date: 20110105
  Receipt Date: 20101203
  Transmission Date: 20110831
  Serious: Yes (Hospitalization)
  Sender: FDA-Public Use
  Company Number: ES-SANOFI-AVENTIS-2010SA074549

PATIENT
  Age: 51 Year
  Sex: Female

DRUGS (6)
  1. TORSEMIDE [Concomitant]
     Route: 048
  2. BISOPROLOL [Concomitant]
     Route: 048
  3. OMEPRAZOLE [Concomitant]
     Route: 048
  4. ACFOL [Concomitant]
     Dosage: DOSE:1 UNIT(S)
     Route: 048
  5. MULTAQ [Suspect]
     Indication: ATRIAL FIBRILLATION
     Route: 048
     Dates: start: 20101126, end: 20101201
  6. SINTROM [Concomitant]
     Indication: ANTICOAGULANT THERAPY
     Route: 048

REACTIONS (3)
  - PYREXIA [None]
  - JAUNDICE [None]
  - HEPATOTOXICITY [None]
